FAERS Safety Report 24029811 (Version 2)
Quarter: 2024Q4

REPORT INFORMATION
  Report Type: Spontaneous
  Country: CA (occurrence: CA)
  Receive Date: 20240628
  Receipt Date: 20241101
  Transmission Date: 20250115
  Serious: Yes (Death, Hospitalization)
  Sender: HLS THERAPEUTICS
  Company Number: CA-HLS-202401547

PATIENT
  Age: 60 Year
  Sex: Male
  Weight: 30 kg

DRUGS (12)
  1. CLOZAPINE [Suspect]
     Active Substance: CLOZAPINE
     Indication: Product used for unknown indication
     Dosage: TABLETS DOSAGE FORM
     Route: 065
  2. ATROVENT [Concomitant]
     Active Substance: IPRATROPIUM BROMIDE
     Indication: Salivary hypersecretion
     Dosage: 1 EVERY 1 DAYS?AMOUNT: 450 MILLIGRAM?UNKNOWN DOSAGE FORM
     Route: 048
  3. ATROVENT [Concomitant]
     Active Substance: IPRATROPIUM BROMIDE
     Indication: Product used for unknown indication
     Dosage: 1 EVERY 1 DAYS?AMOUNT: 450 MILLIGRAM?UNKNOWN DOSAGE FORM
     Route: 048
  4. ATROVENT [Concomitant]
     Active Substance: IPRATROPIUM BROMIDE
     Indication: Salivary hypersecretion
     Dosage: INTRA-NASAL ROUTE OF ADMINISTRATION?NOT SPECIFIED DOSAGE FORM
     Route: 065
  5. ATROVENT [Concomitant]
     Active Substance: IPRATROPIUM BROMIDE
     Indication: Product used for unknown indication
     Dosage: INTRA-NASAL ROUTE OF ADMINISTRATION?NOT SPECIFIED DOSAGE FORM
     Route: 065
  6. ATROVENT [Concomitant]
     Active Substance: IPRATROPIUM BROMIDE
     Indication: Salivary hypersecretion
     Dosage: TABLETS DOSAGE FORM
     Route: 065
  7. ATROVENT [Concomitant]
     Active Substance: IPRATROPIUM BROMIDE
     Indication: Product used for unknown indication
     Dosage: TABLETS DOSAGE FORM
     Route: 065
  8. DIAZEPAM [Concomitant]
     Active Substance: DIAZEPAM
     Dosage: 3 EVERY 1 DAYS?AMOUNT: 250 MILLIGRAM
     Route: 048
  9. NEURONTIN [Concomitant]
     Active Substance: GABAPENTIN
     Dosage: 1 EVERY 1 DAYS?AMOUNT: 100 MILLIGRAM?UNKNOWN DOSAGE FORM
     Route: 048
  10. PANTOPRAZOLE SODIUM [Concomitant]
     Active Substance: PANTOPRAZOLE SODIUM
     Dosage: 1 EVERY 1 DAYS?AMOUNT: 40 MILLIGRAM
     Route: 048
  11. QUETIAPINE FUMARATE [Concomitant]
     Active Substance: QUETIAPINE FUMARATE
     Dosage: 1 EVERY 1 DAYS?AMOUNT: 650 MILLIGRAM
     Route: 048
  12. ZYPREXA [Concomitant]
     Active Substance: OLANZAPINE
     Dosage: AMOUNT: 5 MILLIGRAM?TABLETS DOSAGE FORM
     Route: 065

REACTIONS (7)
  - Blood creatinine increased [Fatal]
  - Blood fibrinogen increased [Fatal]
  - Chest pain [Fatal]
  - Death [Fatal]
  - Glomerular filtration rate decreased [Fatal]
  - High density lipoprotein decreased [Fatal]
  - Myocardial infarction [Fatal]
